FAERS Safety Report 15293197 (Version 2)
Quarter: 2018Q3

REPORT INFORMATION
  Report Type: Report from Study
  Country: CZ (occurrence: CZ)
  Receive Date: 20180820
  Receipt Date: 20180828
  Transmission Date: 20181010
  Serious: Yes (Death, Hospitalization)
  Sender: FDA-Public Use
  Company Number: CZ-ROCHE-2167589

PATIENT
  Age: 78 Year
  Sex: Female

DRUGS (10)
  1. FURON [Concomitant]
     Active Substance: FUROSEMIDE
     Dosage: PROPHYLAXIX OF FLUID RETENTION
     Route: 048
     Dates: start: 20170516, end: 20180809
  2. VALACICLOVIR [Concomitant]
     Active Substance: VALACYCLOVIR HYDROCHLORIDE
     Dosage: PROPHYLAXIS OF HERPETIC INFECTIONS
     Route: 048
     Dates: start: 20160129, end: 20180809
  3. IBRUTINIB [Suspect]
     Active Substance: IBRUTINIB
     Indication: CHRONIC LYMPHOCYTIC LEUKAEMIA
     Dosage: DOSE DELAYED ON 05/AUG/2018.?420 MG DAILY (3 CAPSULES) CONTINUOUSLY (UNTIL EVIDENCE OF PROGRESSIVE D
     Route: 048
     Dates: start: 20150910
  4. COLCHICUM [Concomitant]
     Active Substance: COLCHICINE
     Dosage: PROPHYLAXO OF HYPERURICEMIA
     Route: 048
     Dates: start: 20160607, end: 20180809
  5. COTRIMOXAZOLE [Concomitant]
     Active Substance: SULFAMETHOXAZOLE\TRIMETHOPRIM
     Dosage: PRPHYLAXIS OF INFECTION
     Route: 048
     Dates: start: 20160211, end: 20180809
  6. OBINUTUZUMAB. [Suspect]
     Active Substance: OBINUTUZUMAB
     Indication: CHRONIC LYMPHOCYTIC LEUKAEMIA
     Dosage: OVER 6 CYCLES: DAYS 1+2 (100 MG ON DAY 1 AND 900 MG ON DAY 2), 8 AND 15 OF CYCLE 1 FOLLOWED BY DAY 1
     Route: 042
     Dates: start: 20150910
  7. VIGANTOL [Concomitant]
     Active Substance: CHOLECALCIFEROL
     Dosage: PROPHYLAXIS OF OSTEOPOROSIS?10 DROPS
     Route: 048
     Dates: start: 2011, end: 20180809
  8. AGEN (CZECH REPUBLIC) [Concomitant]
     Route: 048
     Dates: start: 20160203, end: 20180809
  9. COMBAIR (CZECH REPUBLIC) [Concomitant]
     Indication: CHRONIC OBSTRUCTIVE PULMONARY DISEASE
     Route: 055
     Dates: start: 20170323, end: 20180809
  10. AGEN (CZECH REPUBLIC) [Concomitant]
     Indication: HYPERTENSION
     Route: 048
     Dates: start: 20160131, end: 20160202

REACTIONS (1)
  - Pneumonia [Fatal]

NARRATIVE: CASE EVENT DATE: 20180805
